FAERS Safety Report 25643035 (Version 1)
Quarter: 2025Q3

REPORT INFORMATION
  Report Type: Spontaneous
  Country: JP (occurrence: JP)
  Receive Date: 20250805
  Receipt Date: 20250805
  Transmission Date: 20251021
  Serious: Yes (Death, Hospitalization, Other)
  Sender: MERCK SHARP & DOHME LLC
  Company Number: JP-009507513-2299570

PATIENT
  Age: 7 Decade
  Sex: Male

DRUGS (3)
  1. PEMBROLIZUMAB [Suspect]
     Active Substance: PEMBROLIZUMAB
     Indication: Lung squamous cell carcinoma stage IV
     Route: 041
     Dates: start: 20230521, end: 202306
  2. CARBOPLATIN [Suspect]
     Active Substance: CARBOPLATIN
     Indication: Lung squamous cell carcinoma stage IV
     Dates: start: 20230521, end: 202306
  3. PACLITAXEL [Suspect]
     Active Substance: PACLITAXEL
     Indication: Lung squamous cell carcinoma stage IV
     Dates: start: 20230521, end: 202306

REACTIONS (4)
  - Death [Fatal]
  - Cholangitis sclerosing [Unknown]
  - Malignant neoplasm progression [Unknown]
  - Ileus [Unknown]

NARRATIVE: CASE EVENT DATE: 20230101
